FAERS Safety Report 23586100 (Version 1)
Quarter: 2024Q1

REPORT INFORMATION
  Report Type: Spontaneous
  Country: US (occurrence: None)
  Receive Date: 20240301
  Receipt Date: 20240301
  Transmission Date: 20240410
  Serious: Yes (Hospitalization)
  Sender: FDA-Public Use
  Company Number: None

PATIENT
  Sex: Male
  Weight: 88.7 kg

DRUGS (2)
  1. TAXOTERE [Suspect]
     Active Substance: DOCETAXEL
  2. GEMCITABINE HYDROCHLORIDE [Concomitant]
     Active Substance: GEMCITABINE HYDROCHLORIDE

REACTIONS (8)
  - Pulmonary embolism [None]
  - Urinary tract infection [None]
  - Delirium [None]
  - Cerebral infarction [None]
  - Dizziness [None]
  - Asthenia [None]
  - Somnolence [None]
  - Musculoskeletal chest pain [None]

NARRATIVE: CASE EVENT DATE: 20240223
